FAERS Safety Report 9219299 (Version 1)
Quarter: 2013Q2

REPORT INFORMATION
  Report Type: Spontaneous
  Country: US (occurrence: US)
  Receive Date: 20130409
  Receipt Date: 20130409
  Transmission Date: 20140414
  Serious: No
  Sender: FDA-Public Use
  Company Number: US-ROXANE LABORATORIES, INC.-2013-RO-00448RO

PATIENT
  Sex: Female

DRUGS (2)
  1. DIGOXIN [Suspect]
  2. PERDIEM OVERNIGHT RELIEF PILLS [Suspect]
     Route: 048
     Dates: start: 20130321, end: 20130321

REACTIONS (1)
  - Diarrhoea [Recovered/Resolved]
